FAERS Safety Report 7689739-2 (Version None)
Quarter: 2011Q3

REPORT INFORMATION
  Report Type: 
  Country: None (occurrence: None)
  Receive Date: 20110817
  Receipt Date: 20110808
  Transmission Date: 20111222
  Serious: Yes (Other)
  Sender: FDA-Public Use
  Company Number: US-GILEAD-2011-0042719

PATIENT
  Age: 30 Year
  Sex: Female

DRUGS (3)
  1. REYATAZ [Concomitant]
     Indication: HIV INFECTION
     Route: 048
     Dates: start: 20110621
  2. NORVIR [Concomitant]
     Indication: HIV INFECTION
     Route: 048
     Dates: start: 20110621
  3. TRUVADA [Suspect]
     Indication: HIV INFECTION
     Route: 048
     Dates: start: 20110621

REACTIONS (1)
  - ABORTION SPONTANEOUS [None]
